FAERS Safety Report 8355961-5 (Version None)
Quarter: 2012Q2

REPORT INFORMATION
  Report Type: 
  Country: None (occurrence: None)
  Receive Date: 20120514
  Receipt Date: 20120505
  Transmission Date: 20120825
  Serious: Yes (Hospitalization, Other)
  Sender: FDA-Public Use
  Company Number: US-BAYER-2011-037150

PATIENT
  Age: 25 Year
  Sex: Female
  Weight: 77 kg

DRUGS (4)
  1. YAZ [Suspect]
     Indication: CONTRACEPTION
     Dosage: UNK
     Dates: start: 20061101, end: 20070201
  2. PROMETHAZINE [Concomitant]
     Dosage: UNK
     Route: 048
     Dates: start: 20090611
  3. VICODIN [Concomitant]
     Dosage: 7.5/750
     Route: 048
     Dates: start: 20090611
  4. YAZ [Suspect]
     Dosage: UNK
     Dates: start: 20080901, end: 20090901

REACTIONS (8)
  - ABDOMINAL PAIN UPPER [None]
  - EMOTIONAL DISTRESS [None]
  - FEAR [None]
  - CHOLECYSTITIS CHRONIC [None]
  - GALLBLADDER DISORDER [None]
  - INJURY [None]
  - ANXIETY [None]
  - PSYCHOLOGICAL TRAUMA [None]
